FAERS Safety Report 7555972-3 (Version None)
Quarter: 2011Q2

REPORT INFORMATION
  Report Type: 
  Country: None (occurrence: None)
  Receive Date: 20110619
  Receipt Date: 20110607
  Transmission Date: 20111010
  Serious: Yes (Hospitalization)
  Sender: FDA-Public Use
  Company Number: US-ELI_LILLY_AND_COMPANY-US201104006696

PATIENT
  Sex: Female

DRUGS (20)
  1. NOVOLOG [Concomitant]
  2. PANTOPRAZOLE SODIUM [Concomitant]
  3. HYDROCHLOROTHIAZID [Concomitant]
  4. KLOR-CON [Concomitant]
  5. COREG [Concomitant]
  6. LANTUS [Concomitant]
  7. FUROSEMIDE [Concomitant]
  8. ANTIBIOTICS [Concomitant]
  9. CENTRUM [Concomitant]
  10. ASPIRIN [Concomitant]
  11. OYSCO [Concomitant]
  12. POLY-IRON [Concomitant]
  13. FORTEO [Suspect]
     Indication: OSTEOPOROSIS
     Dosage: 20 UG, QD
     Route: 065
     Dates: start: 20110407
  14. LIPITOR [Concomitant]
  15. PLAVIX [Concomitant]
  16. VITAMIN D [Concomitant]
  17. LISINOPRIL [Concomitant]
  18. FORTEO [Suspect]
     Dosage: 20 UG, QD
     Route: 065
  19. CLONIDINE HCL [Concomitant]
  20. AMLODIPINE BESYLATE [Concomitant]

REACTIONS (12)
  - THORACIC VERTEBRAL FRACTURE [None]
  - BLOOD GLUCOSE ABNORMAL [None]
  - CYSTITIS [None]
  - VOMITING [None]
  - BLOOD PRESSURE INCREASED [None]
  - PRODUCTIVE COUGH [None]
  - DYSPEPSIA [None]
  - PYREXIA [None]
  - MALAISE [None]
  - LUMBAR VERTEBRAL FRACTURE [None]
  - PULSE ABNORMAL [None]
  - URINARY TRACT INFECTION [None]
